FAERS Safety Report 13112385 (Version 1)
Quarter: 2017Q1

REPORT INFORMATION
  Report Type: Report from Study
  Country: US (occurrence: US)
  Receive Date: 20170113
  Receipt Date: 20170113
  Transmission Date: 20170428
  Serious: Yes (Hospitalization)
  Sender: FDA-Public Use
  Company Number: US-BEH-200610048

PATIENT
  Age: 30 Year
  Sex: Female
  Weight: 80.5 kg

DRUGS (33)
  1. ALBUTEROL INHALATION SOLUTION [Concomitant]
     Active Substance: ALBUTEROL
     Route: 065
  2. HYDROMORPHONE [Concomitant]
     Active Substance: HYDROMORPHONE
     Dosage: DAILY DOSE QUANTITY: 1, DAILY DOSE UNIT: MG
     Route: 065
  3. PHENERGAN [Concomitant]
     Active Substance: PROMETHAZINE HYDROCHLORIDE
     Dosage: DAILY DOSE QUANTITY: 12.5, DAILY DOSE UNIT: MG
     Route: 065
  4. DEMEROL [Concomitant]
     Active Substance: MEPERIDINE HYDROCHLORIDE
     Dosage: UNK
     Route: 065
     Dates: start: 20060522, end: 20060605
  5. BENADRYL [Concomitant]
     Active Substance: DIPHENHYDRAMINE HYDROCHLORIDE
     Dosage: DAILY DOSE QUANTITY: 25, DAILY DOSE UNIT: MG
     Route: 065
     Dates: start: 20060624, end: 20060709
  6. SODIUM CHLORIDE 0.9% [Concomitant]
     Active Substance: SODIUM CHLORIDE
     Dosage: UNK
     Route: 065
     Dates: start: 20060619, end: 20060619
  7. ATIVAN [Concomitant]
     Active Substance: LORAZEPAM
     Dosage: DAILY DOSE QUANTITY: 1, DAILY DOSE UNIT: MG
     Route: 048
  8. DEMEROL [Concomitant]
     Active Substance: MEPERIDINE HYDROCHLORIDE
     Dosage: UNK
     Route: 065
     Dates: start: 20060619, end: 20060710
  9. PEPCID [Concomitant]
     Active Substance: FAMOTIDINE
     Dosage: DAILY DOSE QUANTITY: 20, DAILY DOSE UNIT: MG
     Route: 065
  10. DELTASONE [Concomitant]
     Active Substance: PREDNISONE
     Dosage: DAILY DOSE QUANTITY: 60, DAILY DOSE UNIT: MG
     Route: 065
  11. PHENERGAN [Concomitant]
     Active Substance: PROMETHAZINE HYDROCHLORIDE
     Dosage: DAILY DOSE QUANTITY: 25, DAILY DOSE UNIT: MG
     Route: 048
  12. NICODERM CQ [Concomitant]
     Active Substance: NICOTINE
     Route: 065
     Dates: start: 20060523, end: 20060531
  13. DEMEROL [Concomitant]
     Active Substance: MEPERIDINE HYDROCHLORIDE
     Dosage: DAILY DOSE QUANTITY: 50, DAILY DOSE UNIT: MG
     Route: 042
     Dates: start: 20060330, end: 20060402
  14. PHENERGAN [Concomitant]
     Active Substance: PROMETHAZINE HYDROCHLORIDE
     Dosage: UNK
     Route: 065
     Dates: start: 20060623, end: 20070711
  15. LORTAB [Concomitant]
     Active Substance: ACETAMINOPHEN\HYDROCODONE BITARTRATE
     Dosage: DAILY DOSE QUANTITY: 7.5, DAILY DOSE UNIT: MG
     Route: 048
     Dates: start: 20060402
  16. SODIUM CHLORIDE 0.9% [Concomitant]
     Active Substance: SODIUM CHLORIDE
     Dosage: DAILY DOSE QUANTITY: 1000, DAILY DOSE UNIT: ML
     Route: 065
  17. PEPCID [Concomitant]
     Active Substance: FAMOTIDINE
     Dosage: DAILY DOSE QUANTITY: 40, DAILY DOSE UNIT: MG
     Route: 065
  18. NOVOLOG [Concomitant]
     Active Substance: INSULIN ASPART
     Route: 058
     Dates: start: 200401
  19. DILAUDID [Concomitant]
     Active Substance: HYDROMORPHONE HYDROCHLORIDE
     Route: 065
     Dates: start: 20060623, end: 20060711
  20. BERINERT [Suspect]
     Active Substance: HUMAN C1-ESTERASE INHIBITOR
     Indication: HEREDITARY ANGIOEDEMA
     Dosage: DAILY DOSE QUANTITY: 16.6, DAILY DOSE UNIT: ML
     Route: 042
     Dates: start: 20060330, end: 20060330
  21. PEPCID [Concomitant]
     Active Substance: FAMOTIDINE
     Dosage: DAILY DOSE QUANTITY: 40, DAILY DOSE UNIT: MG
     Route: 065
  22. HYDROMORPHONE [Concomitant]
     Active Substance: HYDROMORPHONE
     Dosage: DAILY DOSE QUANTITY: 1, DAILY DOSE UNIT: MG
     Route: 065
  23. PHENERGAN [Concomitant]
     Active Substance: PROMETHAZINE HYDROCHLORIDE
     Dosage: DAILY DOSE QUANTITY: 12.5, DAILY DOSE UNIT: MG
     Route: 065
  24. NORCO [Concomitant]
     Active Substance: ACETAMINOPHEN\HYDROCODONE BITARTRATE
     Dosage: DAILY DOSE QUANTITY: 10, DAILY DOSE UNIT: MG
     Route: 048
  25. LANTUS [Concomitant]
     Active Substance: INSULIN GLARGINE
     Dosage: DAILY DOSE QUANTITY: 5, DAILY DOSE UNIT: U
     Route: 058
     Dates: start: 200401
  26. HEPARIN [Concomitant]
     Active Substance: HEPARIN SODIUM
     Route: 065
     Dates: start: 20060621, end: 20060711
  27. BENADRYL [Concomitant]
     Active Substance: DIPHENHYDRAMINE HYDROCHLORIDE
     Dosage: DAILY DOSE QUANTITY: 50, DAILY DOSE UNIT: MG
     Route: 065
     Dates: start: 20060624, end: 20060710
  28. ZOFRAN [Concomitant]
     Active Substance: ONDANSETRON HYDROCHLORIDE
     Route: 065
     Dates: start: 20060620, end: 20060620
  29. BERINERT [Suspect]
     Active Substance: HUMAN C1-ESTERASE INHIBITOR
     Dosage: DAILY DOSE QUANTITY: 32.2, DAILY DOSE UNIT: ML
     Route: 042
     Dates: start: 20060619, end: 20060619
  30. PHENERGAN [Concomitant]
     Active Substance: PROMETHAZINE HYDROCHLORIDE
     Dosage: UNK
     Route: 042
     Dates: start: 20060330, end: 20060402
  31. PHENERGAN [Concomitant]
     Active Substance: PROMETHAZINE HYDROCHLORIDE
     Dosage: UNK
     Route: 065
     Dates: start: 20060522, end: 20060605
  32. SOLU-MEDROL [Concomitant]
     Active Substance: METHYLPREDNISOLONE SODIUM SUCCINATE
     Dosage: DAILY DOSE QUANTITY: 40, DAILY DOSE UNIT: MG
     Route: 065
  33. LOTRISONE [Concomitant]
     Active Substance: BETAMETHASONE DIPROPIONATE\CLOTRIMAZOLE
     Route: 065
     Dates: start: 20060624, end: 20060625

REACTIONS (15)
  - Drug ineffective [Recovered/Resolved]
  - Hereditary angioedema [Recovered/Resolved]
  - Urticaria [Recovered/Resolved]
  - Vomiting [Recovered/Resolved]
  - Hereditary angioedema [Recovered/Resolved]
  - Tonsillar hypertrophy [Recovered/Resolved]
  - Abdominal pain [Recovered/Resolved]
  - Abdominal pain [Recovered/Resolved]
  - Localised oedema [Recovered/Resolved]
  - Throat irritation [Recovered/Resolved]
  - Hereditary angioedema [Recovered/Resolved]
  - Oedema peripheral [Recovered/Resolved]
  - Hereditary angioedema [Recovered/Resolved]
  - Neck pain [Recovered/Resolved]
  - Lymphadenopathy [Recovered/Resolved]

NARRATIVE: CASE EVENT DATE: 20060330
